FAERS Safety Report 5187195-X (Version None)
Quarter: 2006Q4

REPORT INFORMATION
  Report Type: 
  Country: None (occurrence: None)
  Receive Date: 20061212
  Receipt Date: 20061129
  Transmission Date: 20070319
  Serious: Yes (Hospitalization)
  Sender: FDA-Public Use
  Company Number: 8-98310-091A

PATIENT
  Age: 50 Year
  Sex: Female
  Weight: 54.48 kg

DRUGS (6)
  1. EFFEXOR XR [Suspect]
     Indication: DEPRESSION
     Dosage: 37.5 MG 1X PER 1 DAY, ORAL
     Route: 048
     Dates: start: 19980925, end: 19980929
  2. EFFEXOR [Suspect]
     Indication: DEPRESSION
     Dosage: 75 MG 1X PER 1 DAY, ORAL
     Route: 048
     Dates: start: 19981001, end: 19981001
  3. SYNTHROID (LEVOTHYROXINE) (SYNTHROID (LEVOTHYROXINE)) [Concomitant]
  4. MELATONIN (MELATONIN) [Concomitant]
  5. DHEA (PRASTERONE) [Concomitant]
  6. FLAGYL [Concomitant]

REACTIONS (34)
  - AGGRESSION [None]
  - ANHEDONIA [None]
  - ANXIETY [None]
  - ARTERIAL INJURY [None]
  - BLOOD PH DECREASED [None]
  - BLOOD POTASSIUM DECREASED [None]
  - BLOOD PRESSURE INCREASED [None]
  - CONDITION AGGRAVATED [None]
  - DELUSIONAL DISORDER, UNSPECIFIED TYPE [None]
  - DEPRESSION [None]
  - DIZZINESS [None]
  - DRUG SCREEN POSITIVE [None]
  - ELECTROCARDIOGRAM PR SHORTENED [None]
  - EMOTIONAL DISTRESS [None]
  - FLAT AFFECT [None]
  - HAEMATOCRIT DECREASED [None]
  - HAEMOGLOBIN DECREASED [None]
  - HAEMORRHAGE [None]
  - HALLUCINATION [None]
  - HEART RATE INCREASED [None]
  - HYPOTENSION [None]
  - IMPRISONMENT [None]
  - INSOMNIA [None]
  - MENTAL DISORDER [None]
  - MENTAL IMPAIRMENT [None]
  - PAIN [None]
  - PCO2 DECREASED [None]
  - PCO2 INCREASED [None]
  - PHYSICAL ASSAULT [None]
  - PO2 INCREASED [None]
  - SCAR [None]
  - SUICIDE ATTEMPT [None]
  - UNEMPLOYMENT [None]
  - WHITE BLOOD CELLS STOOL [None]
